FAERS Safety Report 14718819 (Version 2)
Quarter: 2018Q2

REPORT INFORMATION
  Report Type: Spontaneous
  Country: ES (occurrence: ES)
  Receive Date: 20180405
  Receipt Date: 20180508
  Transmission Date: 20180711
  Serious: Yes (Other)
  Sender: FDA-Public Use
  Company Number: ES-TEVA-2018-ES-875752

PATIENT
  Age: 23 Year
  Sex: Female

DRUGS (2)
  1. LINELLE (21X LNG 100MICROGRAM/ EE 20MICROGRAM) [Suspect]
     Active Substance: ETHINYL ESTRADIOL\LEVONORGESTREL
     Indication: DYSMENORRHOEA
  2. LINELLE (21X LNG 100MICROGRAM/ EE 20MICROGRAM) [Suspect]
     Active Substance: ETHINYL ESTRADIOL\LEVONORGESTREL
     Indication: CONTRACEPTION
     Route: 048
     Dates: start: 201703, end: 201802

REACTIONS (1)
  - Vulvovaginal mycotic infection [Unknown]

NARRATIVE: CASE EVENT DATE: 201801
